FAERS Safety Report 14009370 (Version 2)
Quarter: 2017Q4

REPORT INFORMATION
  Report Type: Spontaneous
  Country: None (occurrence: US)
  Receive Date: 20170925
  Receipt Date: 20171019
  Transmission Date: 20180321
  Serious: No
  Sender: FDA-Public Use
  Company Number: US-MERZ NORTH AMERICA, INC.-17MRZ-00275

PATIENT
  Sex: Female
  Weight: 54.48 kg

DRUGS (1)
  1. XEOMIN [Suspect]
     Active Substance: INCOBOTULINUMTOXINA
     Indication: PRODUCT USED FOR UNKNOWN INDICATION
     Dosage: 2.5 UNITS PER INJECTION SITE FROM A 100 UNIT VIAL
     Dates: start: 20170724, end: 20170831

REACTIONS (1)
  - Drug ineffective [Recovered/Resolved]
